FAERS Safety Report 4895221-8 (Version None)
Quarter: 2006Q1

REPORT INFORMATION
  Report Type: 
  Country: None (occurrence: None)
  Receive Date: 20060130
  Receipt Date: 20051114
  Transmission Date: 20060701
  Serious: Yes (Other)
  Sender: FDA-Public Use
  Company Number: US-GLAXOSMITHKLINE-A0582206A

PATIENT
  Age: 67 Year
  Sex: Female
  Weight: 67.7 kg

DRUGS (6)
  1. AVANDAMET [Suspect]
     Dosage: 1TAB PER DAY
     Route: 048
     Dates: start: 20050912, end: 20051111
  2. LANTUS [Concomitant]
  3. NOVOLOG [Concomitant]
  4. SYNTHROID [Concomitant]
     Indication: HYPOTHYROIDISM
     Dosage: .088MG PER DAY
     Route: 048
     Dates: start: 20050912
  5. LEXAPRO [Concomitant]
     Dosage: 10MG PER DAY
     Route: 048
  6. ATENOLOL [Concomitant]
     Dosage: 50MG PER DAY
     Route: 048

REACTIONS (8)
  - ANGINA PECTORIS [None]
  - ASTHENIA [None]
  - BLOOD GLUCOSE DECREASED [None]
  - CHEST PAIN [None]
  - COGNITIVE DISORDER [None]
  - DEPRESSED LEVEL OF CONSCIOUSNESS [None]
  - DYSPNOEA [None]
  - LOSS OF CONSCIOUSNESS [None]
